FAERS Safety Report 6279673-7 (Version None)
Quarter: 2009Q3

REPORT INFORMATION
  Report Type: 
  Country: None (occurrence: None)
  Receive Date: 20090723
  Receipt Date: 20090716
  Transmission Date: 20100115
  Serious: Yes (Death)
  Sender: FDA-Public Use
  Company Number: FR-AVENTIS-200912641FR

PATIENT
  Age: 64 Year
  Sex: Male

DRUGS (4)
  1. LOVENOX [Suspect]
     Indication: ABDOMINAL EXPLORATION
     Route: 058
  2. PREVISCAN                          /00789001/ [Suspect]
     Indication: AORTIC VALVE DISEASE
     Route: 048
  3. RAMIPRIL [Concomitant]
  4. TAHOR [Concomitant]
     Route: 048

REACTIONS (2)
  - CEREBRAL HAEMATOMA [None]
  - INTERNATIONAL NORMALISED RATIO INCREASED [None]
